FAERS Safety Report 21093774 (Version 4)
Quarter: 2022Q3

REPORT INFORMATION
  Report Type: Report from Study
  Country: RU (occurrence: RU)
  Receive Date: 20220718
  Receipt Date: 20220819
  Transmission Date: 20221027
  Serious: Yes (Death, Other)
  Sender: FDA-Public Use
  Company Number: RU-PFIZER INC-PV202200019992

PATIENT
  Age: 76 Year
  Sex: Male
  Weight: 62.4 kg

DRUGS (7)
  1. ENZALUTAMIDE [Suspect]
     Active Substance: ENZALUTAMIDE
     Indication: Prostate cancer
     Route: 048
     Dates: start: 20200909, end: 20220503
  2. PREGABALIN [Concomitant]
     Active Substance: PREGABALIN
     Indication: Pain in extremity
     Route: 048
     Dates: start: 20211214
  3. CARDIOMAGNYL [Concomitant]
     Active Substance: ASPIRIN\MAGNESIUM HYDROXIDE
     Indication: Prophylaxis
     Dosage: 90.2 MG (75+15.2), ONCE DAILY
     Route: 048
     Dates: start: 20211118
  4. TORSEMIDE [Concomitant]
     Active Substance: TORSEMIDE
     Indication: Pulmonary hypertension
     Route: 048
     Dates: start: 20211118
  5. INDAPAMIDE [Concomitant]
     Active Substance: INDAPAMIDE
     Indication: Hypertensive heart disease
     Route: 048
     Dates: start: 20211118
  6. BISOPROLOL [Concomitant]
     Active Substance: BISOPROLOL
     Indication: Hypertensive heart disease
     Route: 048
     Dates: start: 20211118
  7. TRIMETAZIDINE DIHYDROCHLORIDE [Concomitant]
     Active Substance: TRIMETAZIDINE DIHYDROCHLORIDE
     Indication: Prophylaxis
     Route: 048
     Dates: start: 20211118

REACTIONS (1)
  - Death [Fatal]

NARRATIVE: CASE EVENT DATE: 20220530
